FAERS Safety Report 20101302 (Version 1)
Quarter: 2021Q4

REPORT INFORMATION
  Report Type: Spontaneous
  Country: US (occurrence: US)
  Receive Date: 20211123
  Receipt Date: 20211123
  Transmission Date: 20220303
  Serious: No
  Sender: FDA-Public Use
  Company Number: US-NOVARTISTESTPH-NVSC2021US266458

PATIENT
  Sex: Female

DRUGS (3)
  1. ESTRADIOL [Suspect]
     Active Substance: ESTRADIOL
     Indication: Product used for unknown indication
     Dosage: 0.05MG/24H 8TTS
     Route: 065
  2. ESTRADIOL [Suspect]
     Active Substance: ESTRADIOL
     Dosage: 0.05MG/1D 4TTSM
     Route: 065
  3. ESTRADIOL [Suspect]
     Active Substance: ESTRADIOL
     Dosage: 0.05MG/1D 4TTSM US
     Route: 065

REACTIONS (2)
  - Hot flush [Unknown]
  - Drug ineffective [Unknown]
